FAERS Safety Report 20067445 (Version 3)
Quarter: 2023Q1

REPORT INFORMATION
  Report Type: Report from Study
  Country: PR (occurrence: PR)
  Receive Date: 20211115
  Receipt Date: 20230126
  Transmission Date: 20230417
  Serious: Yes (Other)
  Sender: FDA-Public Use
  Company Number: PR-ABBVIE-21K-131-3788714-00

PATIENT
  Age: 65 Year
  Sex: Female
  Weight: 57.152 kg

DRUGS (17)
  1. HUMIRA [Suspect]
     Active Substance: ADALIMUMAB
     Indication: Rheumatoid arthritis
     Route: 058
     Dates: start: 20200806, end: 2021
  2. HUMIRA [Suspect]
     Active Substance: ADALIMUMAB
     Indication: Psoriasis
  3. ELASOMERAN [Concomitant]
     Active Substance: ELASOMERAN
     Indication: COVID-19 immunisation
     Dosage: 2ND DOSE
     Route: 030
     Dates: start: 20210330, end: 20210330
  4. ELASOMERAN [Concomitant]
     Active Substance: ELASOMERAN
     Indication: COVID-19 immunisation
     Dosage: 1ST DOSE
     Route: 030
     Dates: start: 20210302, end: 20210302
  5. ELASOMERAN [Concomitant]
     Active Substance: ELASOMERAN
     Indication: COVID-19 immunisation
     Dosage: 3RD DOSE
     Route: 030
     Dates: start: 20210919, end: 20210919
  6. NEURONTIN [Concomitant]
     Active Substance: GABAPENTIN
     Indication: Neuropathy peripheral
     Dosage: FORM STRENGTH: 800 MG
     Route: 048
  7. PREDNISONE [Concomitant]
     Active Substance: PREDNISONE
     Indication: Inflammation
     Dosage: STRENGTH: 5 MG
     Route: 048
  8. METHOTREXATE [Concomitant]
     Active Substance: METHOTREXATE
     Indication: Arthritis
     Dosage: FORM STRENGTH: 2.5 MG
     Route: 048
  9. METHOTREXATE [Concomitant]
     Active Substance: METHOTREXATE
     Indication: Arthritis
     Route: 048
  10. FISH OIL [Concomitant]
     Active Substance: FISH OIL
     Indication: Blood cholesterol abnormal
     Route: 048
  11. MIRALAX [Concomitant]
     Active Substance: POLYETHYLENE GLYCOL 3350
     Indication: Constipation
     Dosage: FREQUENCY TEXT: 1 SPOON A DAY
     Route: 048
  12. TEMAZEPAM [Concomitant]
     Active Substance: TEMAZEPAM
     Indication: Anxiety
     Dosage: 1 TAB AT BED TIME
     Route: 048
  13. ALPRAZOLAM [Concomitant]
     Active Substance: ALPRAZOLAM
     Indication: Anxiety
     Dosage: 1 TAB AT MORNINGS AND 1 AT NIGHTS?FORM STRENGTH: 0.5 MG
     Route: 048
  14. NEURONTIN [Concomitant]
     Active Substance: GABAPENTIN
     Indication: Neuropathy peripheral
     Dosage: TIME INTERVAL: 0.33333333 DAYS
     Route: 048
  15. COVID-19 VACCINE MRNA (MRNA 1273) [Concomitant]
     Indication: COVID-19 immunisation
     Dosage: TIME INTERVAL: 1 TOTAL: 1ST DOSE
     Route: 030
     Dates: start: 20210302, end: 20210302
  16. COVID-19 VACCINE MRNA (MRNA 1273) [Concomitant]
     Indication: COVID-19 immunisation
     Dosage: TIME INTERVAL: 1 TOTAL: 2ND DOSE
     Route: 030
     Dates: start: 20210330, end: 20210330
  17. COVID-19 VACCINE MRNA (MRNA 1273) [Concomitant]
     Indication: COVID-19 immunisation
     Dosage: TIME INTERVAL: 1 TOTAL: 3RD DOSE
     Route: 030
     Dates: start: 20210919, end: 20210919

REACTIONS (6)
  - Intervertebral disc protrusion [Recovering/Resolving]
  - Back pain [Not Recovered/Not Resolved]
  - Cartilage injury [Recovered/Resolved]
  - Arthralgia [Not Recovered/Not Resolved]
  - Hypoaesthesia [Unknown]
  - Tremor [Not Recovered/Not Resolved]

NARRATIVE: CASE EVENT DATE: 20210101
